FAERS Safety Report 9348518 (Version 1)
Quarter: 2013Q2

REPORT INFORMATION
  Report Type: Spontaneous
  Country: US (occurrence: None)
  Receive Date: 20130613
  Receipt Date: 20130613
  Transmission Date: 20140414
  Serious: Yes (Life-Threatening)
  Sender: FDA-Public Use
  Company Number: None

PATIENT
  Age: 44 Year
  Sex: Female
  Weight: 88.91 kg

DRUGS (1)
  1. SUBOXONE [Suspect]
     Indication: DRUG DEPENDENCE
     Dosage: 1 STRIP
     Route: 048
     Dates: start: 201209, end: 201301

REACTIONS (5)
  - Dizziness [None]
  - Syncope [None]
  - Vision blurred [None]
  - Anaemia [None]
  - Hepatic enzyme increased [None]
